FAERS Safety Report 11012476 (Version 1)
Quarter: 2015Q2

REPORT INFORMATION
  Report Type: Spontaneous
  Country: US (occurrence: None)
  Receive Date: 20150401
  Receipt Date: 20150401
  Transmission Date: 20150821
  Serious: Yes (Hospitalization)
  Sender: FDA-Public Use
  Company Number: 1713747-2014-999200

PATIENT
  Age: 55 Year
  Sex: Male

DRUGS (5)
  1. TOPROL XL [Concomitant]
     Active Substance: METOPROLOL SUCCINATE
  2. DELFLEX [Suspect]
     Active Substance: CALCIUM CHLORIDE\DEXTROSE MONOHYDRATE\MAGNESIUM CHLORIDE\SODIUM CHLORIDE\SODIUM LACTATE
     Indication: CHRONIC KIDNEY DISEASE
     Route: 033
  3. LISINOPRIL. [Concomitant]
     Active Substance: LISINOPRIL
  4. LIBERTY CYCLER [Concomitant]
     Active Substance: DEVICE
  5. LIBERTY TUBING [Concomitant]

REACTIONS (1)
  - Peritonitis [None]

NARRATIVE: CASE EVENT DATE: 20141020
